FAERS Safety Report 4805379-4 (Version None)
Quarter: 2005Q4

REPORT INFORMATION
  Report Type: 
  Country: None (occurrence: None)
  Receive Date: 20051017
  Receipt Date: 20051009
  Transmission Date: 20060501
  Serious: Yes (Death, Other)
  Sender: FDA-Public Use
  Company Number: USA-2002-0001862

PATIENT
  Age: 37 Year
  Sex: Male

DRUGS (3)
  1. OXYCONTIN [Suspect]
     Indication: PAIN
     Dosage: MG
     Dates: start: 19990101
  2. METHADONE HCL [Suspect]
     Indication: PAIN
     Dates: start: 19990101
  3. DILAUDID [Suspect]
     Indication: PAIN
     Dates: start: 19990101

REACTIONS (10)
  - ACCIDENTAL DEATH [None]
  - BRAIN OEDEMA [None]
  - DRUG DEPENDENCE [None]
  - DRUG INTERACTION [None]
  - DRUG TOXICITY [None]
  - LOSS OF CONSCIOUSNESS [None]
  - MULTIPLE DRUG OVERDOSE ACCIDENTAL [None]
  - PULMONARY CONGESTION [None]
  - PULMONARY OEDEMA [None]
  - VENTRICULAR HYPERTROPHY [None]
